FAERS Safety Report 24619284 (Version 1)
Quarter: 2024Q4

REPORT INFORMATION
  Report Type: Spontaneous
  Country: US (occurrence: US)
  Receive Date: 20241114
  Receipt Date: 20241114
  Transmission Date: 20250115
  Serious: No
  Sender: CURRAX PHARMACEUTICALS
  Company Number: US-CURRAX PHARMACEUTICALS LLC-US-2023CUR005121

PATIENT
  Age: 49 Year
  Sex: Female

DRUGS (6)
  1. CONTRAVE [Suspect]
     Active Substance: BUPROPION HYDROCHLORIDE\NALTREXONE HYDROCHLORIDE
     Indication: Weight control
     Dosage: STRENGTH 8/90 MG, ONE PILL IN AM FOR FIRST WEEK
     Route: 048
     Dates: start: 20231202, end: 202312
  2. CONTRAVE [Suspect]
     Active Substance: BUPROPION HYDROCHLORIDE\NALTREXONE HYDROCHLORIDE
     Dosage: STRENGTH 8/90 MG, RESTARTED AT AN UNKNOWN DOSE AND FREQUENCY
     Route: 048
     Dates: start: 20231208, end: 202312
  3. CONTRAVE [Suspect]
     Active Substance: BUPROPION HYDROCHLORIDE\NALTREXONE HYDROCHLORIDE
     Dosage: STRENGTH: 8/90 MG, ONE PILL IN AM AND ONE PILL IN PM FOR SECOND WEEK,
     Route: 048
     Dates: start: 202312, end: 202312
  4. CONTRAVE [Suspect]
     Active Substance: BUPROPION HYDROCHLORIDE\NALTREXONE HYDROCHLORIDE
     Dosage: STRENGTH: 8/90 MG, TWO PILLS IN AM AND 1 PILL IN PM FOR THIRD WEEK
     Route: 048
     Dates: start: 202312, end: 202312
  5. CONTRAVE [Suspect]
     Active Substance: BUPROPION HYDROCHLORIDE\NALTREXONE HYDROCHLORIDE
     Dosage: STRENGTH: 8/90 MG, 2 PILLS IN AM AND 2 PILLS IN PM STARTING IN FOURTH WEEK
     Route: 048
     Dates: start: 202312
  6. LACTASE [Concomitant]
     Active Substance: LACTASE
     Indication: Diarrhoea
     Dosage: UNK
     Dates: start: 20231208

REACTIONS (3)
  - Diarrhoea [Recovered/Resolved]
  - Reaction to excipient [Recovered/Resolved]
  - Contraindicated product administered [Unknown]

NARRATIVE: CASE EVENT DATE: 20231202
